FAERS Safety Report 8684367 (Version 4)
Quarter: 2014Q1

REPORT INFORMATION
  Report Type: Spontaneous
  Country: US (occurrence: US)
  Receive Date: 20120726
  Receipt Date: 20140320
  Transmission Date: 20141002
  Serious: Yes (Hospitalization, Disabling, Other)
  Sender: FDA-Public Use
  Company Number: US-009507513-1207USA004868

PATIENT
  Sex: Female
  Weight: 49.89 kg

DRUGS (3)
  1. FOSAMAX [Suspect]
     Indication: OSTEOPENIA
     Dosage: UNK
     Route: 048
     Dates: start: 20031010
  2. FOSAMAX PLUS D [Suspect]
     Indication: OSTEOPENIA
     Dosage: UNK
     Route: 048
     Dates: start: 20051110, end: 20081206
  3. ENALAPRIL MALEATE [Concomitant]
     Indication: HYPERTENSION
     Dosage: UNK
     Dates: start: 2000

REACTIONS (14)
  - Femur fracture [Not Recovered/Not Resolved]
  - Intramedullary rod insertion [Not Recovered/Not Resolved]
  - Femur fracture [Not Recovered/Not Resolved]
  - Intramedullary rod insertion [Not Recovered/Not Resolved]
  - Cholelithiasis [Unknown]
  - Vitamin D deficiency [Unknown]
  - Calcium deficiency [Unknown]
  - Appendicectomy [Unknown]
  - Anaemia postoperative [Unknown]
  - Anaemia [Unknown]
  - Cholelithotomy [Unknown]
  - Haematoma [Unknown]
  - Bundle branch block right [Unknown]
  - Osteoporosis [Unknown]
